FAERS Safety Report 7588657-8 (Version None)
Quarter: 2011Q2

REPORT INFORMATION
  Report Type: 
  Country: None (occurrence: None)
  Receive Date: 20110627
  Receipt Date: 20110616
  Transmission Date: 20111010
  Serious: Yes (Hospitalization, Other)
  Sender: FDA-Public Use
  Company Number: 118634

PATIENT
  Age: 19 Year
  Sex: Male

DRUGS (1)
  1. KETAMINE HCL [Suspect]
     Dosage: 100-200ML

REACTIONS (16)
  - BRADYCARDIA [None]
  - MEDICATION ERROR [None]
  - INTENTIONAL DRUG MISUSE [None]
  - OVERDOSE [None]
  - ALCOHOL USE [None]
  - PCO2 INCREASED [None]
  - BLOOD BICARBONATE DECREASED [None]
  - BASE EXCESS DECREASED [None]
  - TOXICITY TO VARIOUS AGENTS [None]
  - LOSS OF CONSCIOUSNESS [None]
  - HYPOTENSION [None]
  - BLOOD PH DECREASED [None]
  - PO2 INCREASED [None]
  - AGITATION [None]
  - COMA SCALE ABNORMAL [None]
  - INCORRECT ROUTE OF DRUG ADMINISTRATION [None]
